FAERS Safety Report 7341790-8 (Version None)
Quarter: 2011Q1

REPORT INFORMATION
  Report Type: 
  Country: None (occurrence: None)
  Receive Date: 20110309
  Receipt Date: 20110303
  Transmission Date: 20110831
  Serious: Yes (Hospitalization, Disabling, Other)
  Sender: FDA-Public Use
  Company Number: US-ELI_LILLY_AND_COMPANY-US201103001086

PATIENT
  Sex: Female

DRUGS (3)
  1. APIDRA [Concomitant]
     Indication: TYPE 2 DIABETES MELLITUS
     Dosage: 20 U, 3/D
  2. LANTUS [Concomitant]
     Indication: TYPE 2 DIABETES MELLITUS
     Dosage: 80 U, DAILY (1/D)
  3. BYETTA [Suspect]
     Indication: TYPE 2 DIABETES MELLITUS
     Dosage: 5 UG, 2/D
     Route: 058
     Dates: start: 20050101

REACTIONS (7)
  - OFF LABEL USE [None]
  - FALL [None]
  - NERVE COMPRESSION [None]
  - INTERVERTEBRAL DISC DEGENERATION [None]
  - BURSITIS [None]
  - SPINAL CORD INJURY [None]
  - TREMOR [None]
